FAERS Safety Report 8913589 (Version 2)
Quarter: 2012Q4

REPORT INFORMATION
  Report Type: 
  Country: SE (occurrence: SE)
  Receive Date: 20121119
  Receipt Date: 20121212
  Transmission Date: 20130627
  Serious: Yes (Hospitalization, Other)
  Sender: FDA-Public Use
  Company Number: SE-JNJFOC-20121106108

PATIENT
  Age: 86 Year
  Sex: Male

DRUGS (5)
  1. XARELTO [Suspect]
     Indication: THROMBOSIS PROPHYLAXIS
     Route: 048
     Dates: start: 20121016, end: 20121114
  2. XARELTO [Suspect]
     Indication: HIP ARTHROPLASTY
     Route: 048
     Dates: start: 20121016, end: 20121114
  3. NAPROXEN SODIUM [Interacting]
     Indication: PROCEDURAL PAIN
     Route: 048
     Dates: start: 20121016, end: 20121018
  4. LOSARTAN [Concomitant]
     Route: 065
  5. SALURES [Concomitant]
     Route: 065

REACTIONS (5)
  - Gastric ulcer [Recovered/Resolved]
  - Melaena [Recovered/Resolved]
  - Haematuria [Recovered/Resolved]
  - Syncope [Recovered/Resolved]
  - Drug interaction [Unknown]
